FAERS Safety Report 6336196-4 (Version None)
Quarter: 2009Q3

REPORT INFORMATION
  Report Type: 
  Country: None (occurrence: None)
  Receive Date: 20090901
  Receipt Date: 20090825
  Transmission Date: 20100115
  Serious: Yes (Other)
  Sender: FDA-Public Use
  Company Number: PL-BRISTOL-MYERS SQUIBB COMPANY-12842910

PATIENT
  Age: 41 Year
  Sex: Male

DRUGS (4)
  1. ENTECAVIR [Suspect]
     Indication: HEPATITIS B
     Dosage: INTERRUPTED
     Route: 048
     Dates: start: 20031007
  2. LAMIVUDINE [Suspect]
     Indication: HEPATITIS B
     Route: 048
     Dates: start: 20031007, end: 20040809
  3. ASPIRIN [Concomitant]
     Dates: start: 20050117, end: 20050203
  4. ASCORBIC ACID [Concomitant]
     Dates: start: 20050117, end: 20050203

REACTIONS (2)
  - ALANINE AMINOTRANSFERASE INCREASED [None]
  - ASPARTATE AMINOTRANSFERASE INCREASED [None]
